FAERS Safety Report 9066743 (Version 1)
Quarter: 2013Q1

REPORT INFORMATION
  Report Type: Spontaneous
  Country: US (occurrence: US)
  Receive Date: 20130214
  Receipt Date: 20130214
  Transmission Date: 20140127
  Serious: Yes (Life-Threatening, Hospitalization, Other)
  Sender: FDA-Public Use
  Company Number: US-GLAXOSMITHKLINE-A1008087A

PATIENT
  Age: 43 Year
  Sex: Female
  Weight: 62.7 kg

DRUGS (1)
  1. VOTRIENT [Suspect]
     Indication: LEIOMYOSARCOMA METASTATIC
     Dosage: 800MG PER DAY
     Route: 048
     Dates: start: 20121210, end: 20130118

REACTIONS (7)
  - Central nervous system haemorrhage [Recovered/Resolved]
  - Neurosurgery [Recovered/Resolved]
  - Vomiting [Recovered/Resolved]
  - Muscle spasms [Recovered/Resolved]
  - Throat irritation [Recovered/Resolved]
  - Oral discomfort [Recovered/Resolved]
  - Nausea [Recovered/Resolved]
